FAERS Safety Report 4676908-9 (Version None)
Quarter: 2005Q2

REPORT INFORMATION
  Report Type: 
  Country: None (occurrence: None)
  Receive Date: 20050526
  Receipt Date: 20050419
  Transmission Date: 20051028
  Serious: Yes (Hospitalization)
  Sender: FDA-Public Use
  Company Number: WAES 0504USA03469

PATIENT
  Age: 73 Year
  Sex: Female

DRUGS (3)
  1. VYTORIN [Suspect]
     Indication: BLOOD CHOLESTEROL INCREASED
     Dosage: 10-40 MG/DAILY/PO
     Route: 048
     Dates: start: 20040915
  2. ACTONEL [Concomitant]
  3. PEPTO-BISMOL [Concomitant]

REACTIONS (2)
  - CHOLELITHIASIS [None]
  - HEPATIC CYST [None]
